FAERS Safety Report 9379339 (Version 1)
Quarter: 2013Q2

REPORT INFORMATION
  Report Type: Spontaneous
  Country: US (occurrence: None)
  Receive Date: 20130626
  Receipt Date: 20130626
  Transmission Date: 20140414
  Serious: Yes (Death)
  Sender: FDA-Public Use
  Company Number: ACCP20130004

PATIENT
  Age: 4 Year
  Sex: Female
  Weight: 59 kg

DRUGS (3)
  1. ACETAMINOPHEN AND CODEINE PHOSPHATE [Suspect]
     Indication: PAIN
     Dosage: 0.29 MG/KG EVERY 4 HRS AS NEEDED
     Route: 048
  2. VALPROIC ACID (VALPROIC ACID) (UNKNOWN) (VALPROIC ACID) [Concomitant]
  3. BOTOX (BOTULINUM TOXIN TYPE A) (INJECTION) (BOTULINUM TOXIN TYPE A) [Concomitant]

REACTIONS (4)
  - Loss of consciousness [None]
  - Craniocerebral injury [None]
  - Toxicity to various agents [None]
  - Accidental death [None]
